FAERS Safety Report 4662305-9 (Version None)
Quarter: 2005Q2

REPORT INFORMATION
  Report Type: 
  Country: None (occurrence: None)
  Receive Date: 20050512
  Receipt Date: 20050425
  Transmission Date: 20051028
  Serious: Yes (Hospitalization, Other)
  Sender: FDA-Public Use
  Company Number: USA050496485

PATIENT
  Age: 56 Year
  Sex: Female
  Weight: 103 kg

DRUGS (2)
  1. HUMALOG [Suspect]
     Dosage: 35 U DAY
  2. INSULIN [Suspect]

REACTIONS (5)
  - ARTHROPATHY [None]
  - FALL [None]
  - PHARMACEUTICAL PRODUCT COMPLAINT [None]
  - RESPIRATORY FUME INHALATION DISORDER [None]
  - THROMBOSIS [None]
